FAERS Safety Report 9726207 (Version 2)
Quarter: 2014Q1

REPORT INFORMATION
  Report Type: Spontaneous
  Country: FR (occurrence: FR)
  Receive Date: 20131203
  Receipt Date: 20140220
  Transmission Date: 20141002
  Serious: Yes (Hospitalization)
  Sender: FDA-Public Use
  Company Number: FR-PFIZER INC-2013338514

PATIENT
  Age: 67 Year
  Sex: Female

DRUGS (14)
  1. TRIFLUCAN [Suspect]
     Dosage: UNK
     Route: 048
     Dates: start: 20130907, end: 20131006
  2. VANCOMYCINE [Suspect]
     Dosage: UNK
     Route: 042
     Dates: start: 20130926, end: 20131012
  3. EUPANTOL [Suspect]
     Dosage: UNK
     Route: 042
     Dates: start: 20130914, end: 20131016
  4. TIENAM [Suspect]
     Dosage: UNK
     Route: 042
     Dates: start: 20130907, end: 20130930
  5. HYPNOVEL [Suspect]
     Dosage: UNK
     Route: 042
     Dates: start: 20130907, end: 20130919
  6. HYPNOVEL [Suspect]
     Dosage: UNK
     Route: 042
     Dates: start: 20130925, end: 20130927
  7. SUFENTA [Suspect]
     Dosage: UNK
     Route: 042
     Dates: start: 20130907, end: 20130920
  8. SUFENTA [Suspect]
     Dosage: UNK
     Route: 042
     Dates: start: 20130924, end: 20131006
  9. NORADRENALINE [Suspect]
     Dosage: UNK
     Route: 042
     Dates: start: 20130907, end: 20131006
  10. SANDOSTATINE [Concomitant]
     Dosage: UNK
     Dates: start: 20130922, end: 20131026
  11. PARACETAMOL [Concomitant]
     Dosage: UNK
     Dates: start: 20130922
  12. SERESTA [Concomitant]
     Dosage: UNK
     Dates: start: 20130922
  13. LOVENOX [Concomitant]
  14. MORPHINE [Concomitant]
     Dosage: UNK
     Dates: start: 20130925

REACTIONS (4)
  - Rash macular [Recovered/Resolved]
  - Eosinophilia [Recovered/Resolved]
  - Gamma-glutamyltransferase increased [Recovering/Resolving]
  - Blood alkaline phosphatase increased [Recovered/Resolved]
